FAERS Safety Report 6085707-5 (Version None)
Quarter: 2009Q1

REPORT INFORMATION
  Report Type: 
  Country: None (occurrence: None)
  Receive Date: 20090217
  Receipt Date: 20090217
  Transmission Date: 20090719
  Serious: Yes (Other)
  Sender: FDA-Public Use
  Company Number: None

PATIENT
  Age: 9 Month
  Sex: Male
  Weight: 11.7935 kg

DRUGS (1)
  1. KENALOG [Suspect]
     Indication: POST PROCEDURAL SWELLING
     Dosage: 2CC ONCE ID
     Route: 023
     Dates: start: 20081111, end: 20081111

REACTIONS (5)
  - AGITATION [None]
  - CRYING [None]
  - DEFORMITY [None]
  - SKIN DISCOLOURATION [None]
  - SLEEP DISORDER [None]
